FAERS Safety Report 9491051 (Version 1)
Quarter: 2013Q3

REPORT INFORMATION
  Report Type: Spontaneous
  Country: US (occurrence: None)
  Receive Date: 20130826
  Receipt Date: 20130826
  Transmission Date: 20140515
  Serious: Yes (Disabling)
  Sender: FDA-Public Use
  Company Number: 1862616

PATIENT
  Age: 59 Year
  Sex: Female

DRUGS (1)
  1. METHOTREXATE [Suspect]
     Dosage: ONE WEEK

REACTIONS (4)
  - Corneal disorder [None]
  - Toxicity to various agents [None]
  - Visual acuity reduced [None]
  - Condition aggravated [None]
